FAERS Safety Report 6910752-4 (Version None)
Quarter: 2010Q3

REPORT INFORMATION
  Report Type: 
  Country: None (occurrence: None)
  Receive Date: 20100806
  Receipt Date: 20100729
  Transmission Date: 20110219
  Serious: Yes (Other)
  Sender: FDA-Public Use
  Company Number: US-PFIZER INC-2010029432

PATIENT
  Sex: Female
  Weight: 131.52 kg

DRUGS (8)
  1. LYRICA [Suspect]
     Indication: PAIN
     Dosage: 75 MG, 1X/DAY
     Route: 048
     Dates: start: 20100129
  2. CELEBREX [Suspect]
     Indication: PAIN
     Dosage: UNK
     Dates: start: 20100115, end: 20100101
  3. LODINE [Suspect]
     Dosage: UNK
     Dates: start: 20100222, end: 20100225
  4. VITAMIN TAB [Concomitant]
     Dosage: UNK
  5. DEPO-PROVERA [Concomitant]
     Dosage: UNK
  6. RESTORIL [Concomitant]
  7. XANAX [Concomitant]
  8. VICODIN [Concomitant]
     Dosage: UNK

REACTIONS (12)
  - COGNITIVE DISORDER [None]
  - DIZZINESS [None]
  - DRUG INEFFECTIVE [None]
  - DRY EYE [None]
  - FIBROMYALGIA [None]
  - INSOMNIA [None]
  - MEMORY IMPAIRMENT [None]
  - NAUSEA [None]
  - PAIN [None]
  - RASH [None]
  - VERTIGO [None]
  - VISION BLURRED [None]
